FAERS Safety Report 7150830-0 (Version None)
Quarter: 2010Q4

REPORT INFORMATION
  Report Type: 
  Country: None (occurrence: None)
  Receive Date: 20101124
  Receipt Date: 20101108
  Transmission Date: 20110411
  Serious: Yes (Hospitalization)
  Sender: FDA-Public Use
  Company Number: 2010P1002265

PATIENT
  Age: 62 Year
  Sex: Female
  Weight: 104.3273 kg

DRUGS (10)
  1. CARBAMAZEPINE [Suspect]
     Indication: CONVULSION
     Dosage: 200 MG; BID; PO
     Route: 048
     Dates: start: 20090101
  2. PROCARDIA [Concomitant]
  3. MYSOLINE [Concomitant]
  4. LANTUS [Concomitant]
  5. NOVOLOG [Concomitant]
  6. CLONIDINE [Concomitant]
  7. SINGULAIR [Concomitant]
  8. POTASSIUM [Concomitant]
  9. COMBIVENT [Concomitant]
  10. ^DUOMED^ [Concomitant]

REACTIONS (3)
  - ORGANISING PNEUMONIA [None]
  - PRODUCT SUBSTITUTION ISSUE [None]
  - PULMONARY TOXICITY [None]
